FAERS Safety Report 10650957 (Version 2)
Quarter: 2014Q4

REPORT INFORMATION
  Report Type: Spontaneous
  Country: US (occurrence: US)
  Receive Date: 20141215
  Receipt Date: 20141223
  Transmission Date: 20150529
  Serious: Yes (Life-Threatening, Other)
  Sender: FDA-Public Use
  Company Number: US-JNJFOC-20141207755

PATIENT
  Age: 52 Year
  Sex: Male

DRUGS (1)
  1. IBUPROFEN. [Suspect]
     Active Substance: IBUPROFEN
     Indication: PRODUCT USED FOR UNKNOWN INDICATION
     Dosage: IN UNCERTAIN QUANTITIES
     Route: 048

REACTIONS (4)
  - Hyperkalaemia [Unknown]
  - Chest pain [Unknown]
  - Dyspnoea [Unknown]
  - Quadriplegia [Recovered/Resolved]
